FAERS Safety Report 8914065 (Version 2)
Quarter: 2013Q1

REPORT INFORMATION
  Report Type: Report from Study
  Country: US (occurrence: US)
  Receive Date: 20121116
  Receipt Date: 20130131
  Transmission Date: 20140127
  Serious: Yes (Hospitalization)
  Sender: FDA-Public Use
  Company Number: US-TEVA-369600USA

PATIENT
  Age: 77 None
  Sex: Male
  Weight: 107.69 kg

DRUGS (19)
  1. CUSTIRSEN [Suspect]
     Indication: SMALL CELL LUNG CANCER
     Dosage: WEEKLY
     Route: 042
     Dates: start: 20120820
  2. PACLITAXEL [Suspect]
     Indication: SMALL CELL LUNG CANCER
     Dosage: 200 MG/M2 Q3 WEEKS
     Route: 042
     Dates: start: 20120809
  3. CARBOPLATIN [Suspect]
     Indication: SMALL CELL LUNG CANCER
     Dosage: AUC 6- Q3 WEEKS
     Route: 042
     Dates: start: 20120809
  4. LOVENOX [Concomitant]
     Indication: ATRIAL FIBRILLATION
     Dosage: 40 MILLIGRAM DAILY;
     Route: 058
     Dates: start: 20121012, end: 20121017
  5. LOVENOX [Concomitant]
     Indication: PROPHYLAXIS
     Dosage: 40 MILLIGRAM DAILY;
     Route: 058
     Dates: start: 20121025, end: 20121030
  6. PRADAXA (DABIGATRAN ETEXILATE) [Concomitant]
     Indication: ATRIAL FIBRILLATION
     Dosage: 300 MILLIGRAM DAILY;
     Route: 048
     Dates: start: 2010, end: 20121012
  7. PRADAXA (DABIGATRAN ETEXILATE) [Concomitant]
     Indication: PROPHYLAXIS
     Dosage: 300 MILLIGRAM DAILY;
     Route: 048
     Dates: start: 20121018, end: 20121025
  8. PRADAXA (DABIGATRAN ETEXILATE) [Concomitant]
     Dosage: 300 MILLIGRAM DAILY;
     Route: 048
     Dates: start: 20121102, end: 20121107
  9. ASPIRIN [Concomitant]
     Indication: CARDIOVASCULAR EVENT PROPHYLAXIS
     Dosage: 81 MILLIGRAM DAILY;
     Route: 048
     Dates: start: 2010, end: 20121013
  10. NEULASTA [Concomitant]
     Indication: PROPHYLAXIS
     Dosage: Q 3 WEEKS
     Route: 058
  11. DEXAMETHASONE [Concomitant]
     Indication: PREMEDICATION
     Dosage: Q 3 WEEKS
     Route: 042
     Dates: start: 20120809
  12. DEXAMETHASONE [Concomitant]
     Dosage: Q 3 WEEKS
     Route: 048
     Dates: start: 20120808
  13. ALOXI [Concomitant]
     Indication: PREMEDICATION
     Dosage: Q 3 WEEKS
     Route: 042
     Dates: start: 20120809
  14. DIPHENHYDRAMINE [Concomitant]
     Indication: PREMEDICATION
     Dosage: Q 3 WEEKS
     Route: 042
     Dates: start: 20120809
  15. RANITIDINE [Concomitant]
     Indication: PREMEDICATION
     Dosage: Q 3 WEEKS
     Route: 042
     Dates: start: 20120809
  16. METOPROLOL [Concomitant]
     Indication: ATRIAL FIBRILLATION
     Dosage: 100 MILLIGRAM DAILY;
     Route: 048
     Dates: start: 201207, end: 20121103
  17. ATORVASTATIN [Concomitant]
     Indication: HYPERLIPIDAEMIA
     Dosage: 20 MILLIGRAM DAILY; HS
     Route: 048
     Dates: start: 2000
  18. ALLOPURINOL [Concomitant]
     Indication: GOUT
     Dosage: 300 MILLIGRAM DAILY;
     Route: 048
     Dates: start: 2000
  19. NIASPAN [Concomitant]
     Indication: HYPERLIPIDAEMIA
     Dosage: 500 MILLIGRAM DAILY;
     Route: 048
     Dates: start: 2003

REACTIONS (1)
  - Atrial fibrillation [Recovered/Resolved]
